FAERS Safety Report 15694483 (Version 1)
Quarter: 2018Q4

REPORT INFORMATION
  Report Type: Report from Study
  Country: RU (occurrence: RU)
  Receive Date: 20181206
  Receipt Date: 20181206
  Transmission Date: 20190205
  Serious: Yes (Other)
  Sender: FDA-Public Use
  Company Number: RU-ASTRAZENECA-2018SF57474

PATIENT
  Age: 58 Year
  Sex: Female
  Weight: 90 kg

DRUGS (6)
  1. FORXIGA [Suspect]
     Active Substance: DAPAGLIFLOZIN
     Indication: TYPE 2 DIABETES MELLITUS
     Route: 048
     Dates: start: 201805
  2. AMLODIPINE [Concomitant]
     Active Substance: AMLODIPINE BESYLATE
  3. VALSACOR [Concomitant]
     Active Substance: VALSARTAN
  4. SIOFOR [Concomitant]
     Active Substance: METFORMIN HYDROCHLORIDE
  5. VEROSPIRON [Concomitant]
     Active Substance: SPIRONOLACTONE
  6. AMARYL [Concomitant]
     Active Substance: GLIMEPIRIDE

REACTIONS (2)
  - Blood pressure decreased [Unknown]
  - Genital burning sensation [Recovered/Resolved]

NARRATIVE: CASE EVENT DATE: 201805
